FAERS Safety Report 8225707-X (Version None)
Quarter: 2012Q1

REPORT INFORMATION
  Report Type: 
  Country: None (occurrence: None)
  Receive Date: 20120321
  Receipt Date: 20120316
  Transmission Date: 20120608
  Serious: Yes (Hospitalization)
  Sender: FDA-Public Use
  Company Number: AT-ABBOTT-12P-009-0906786-00

PATIENT
  Age: 57 Year
  Sex: Male

DRUGS (1)
  1. HUMIRA [Suspect]
     Indication: CROHN'S DISEASE
     Dosage: WEEK 0

REACTIONS (8)
  - LOSS OF CONSCIOUSNESS [None]
  - PNEUMONIA [None]
  - TINNITUS [None]
  - ORAL CANDIDIASIS [None]
  - UNEVALUABLE EVENT [None]
  - INFECTION [None]
  - SEPSIS [None]
  - PNEUMOCOCCAL SEPSIS [None]
